FAERS Safety Report 20063570 (Version 1)
Quarter: 2021Q4

REPORT INFORMATION
  Report Type: Spontaneous
  Country: FR (occurrence: FR)
  Receive Date: 20211112
  Receipt Date: 20211112
  Transmission Date: 20220303
  Serious: No
  Sender: FDA-Public Use
  Company Number: FR-Merck Healthcare KGaA-9275452

PATIENT
  Sex: Female

DRUGS (3)
  1. CYMBALTA [Suspect]
     Active Substance: DULOXETINE HYDROCHLORIDE
     Indication: Pain in extremity
     Dosage: UNK UNK, UNKNOWN
     Route: 065
  2. FLUINDIONE [Suspect]
     Active Substance: FLUINDIONE
     Indication: Pulmonary embolism
     Dosage: UNK UNK, UNKNOWN
     Route: 065
  3. FLUINDIONE [Suspect]
     Active Substance: FLUINDIONE
     Indication: Transient ischaemic attack

REACTIONS (8)
  - Neuralgia [Not Recovered/Not Resolved]
  - Fibromyalgia [Not Recovered/Not Resolved]
  - International normalised ratio abnormal [Unknown]
  - Food craving [Unknown]
  - Hyperhidrosis [Unknown]
  - Tremor [Unknown]
  - Pain in extremity [Recovering/Resolving]
  - Off label use [Unknown]
